FAERS Safety Report 19418963 (Version 2)
Quarter: 2021Q2

REPORT INFORMATION
  Report Type: Spontaneous
  Country: US (occurrence: US)
  Receive Date: 20210615
  Receipt Date: 20210622
  Transmission Date: 20210717
  Serious: Yes (Hospitalization, Other)
  Sender: FDA-Public Use
  Company Number: US-PFIZER INC-2021676246

PATIENT
  Age: 56 Year
  Sex: Female

DRUGS (4)
  1. GEMCITABINE HYDROCHLORIDE. [Suspect]
     Active Substance: GEMCITABINE HYDROCHLORIDE
     Dosage: 1000 MG/M2, CYCLIC (GIVEN ON DAYS 1, 8 AND 15)
     Dates: start: 2019
  2. GEMCITABINE HYDROCHLORIDE. [Suspect]
     Active Substance: GEMCITABINE HYDROCHLORIDE
     Indication: ADENOCARCINOMA PANCREAS
     Dosage: UNK (SECOND?LINE)
     Dates: start: 201901
  3. ABRAXANE [Concomitant]
     Active Substance: PACLITAXEL
     Indication: ADENOCARCINOMA PANCREAS
     Dosage: 125 MG/M2, CYCLIC (GIVEN ON DAYS 1, 8 AND 15, FOUR, 21?DAY CYCLES)
     Dates: start: 2019
  4. NAB?PACLITAXEL [Concomitant]
     Active Substance: PACLITAXEL
     Indication: ADENOCARCINOMA PANCREAS
     Dosage: UNK (SECOND?LINE)
     Dates: start: 201901

REACTIONS (2)
  - Myositis [Recovered/Resolved]
  - Recall phenomenon [Recovered/Resolved]

NARRATIVE: CASE EVENT DATE: 201904
